FAERS Safety Report 19834452 (Version 2)
Quarter: 2021Q4

REPORT INFORMATION
  Report Type: Report from Study
  Country: None (occurrence: US)
  Receive Date: 20210914
  Receipt Date: 20211021
  Transmission Date: 20220303
  Serious: Yes (Hospitalization)
  Sender: FDA-Public Use
  Company Number: US-ABBVIE-21P-163-4072161-00

PATIENT
  Age: 62 Year
  Sex: Male

DRUGS (3)
  1. VENETOCLAX [Suspect]
     Active Substance: VENETOCLAX
     Indication: Acute myeloid leukaemia
     Dosage: C2D1= 27 AUG 2021(50 MG), EVERY DAY FOR 21 DAYS (100 MG,1 IN 1 D)
     Route: 048
  2. AZACITIDINE [Concomitant]
     Active Substance: AZACITIDINE
     Indication: Acute myeloid leukaemia
     Dosage: C2D1:  27/AUG/2021 DAILY FOR 7 DAYS
     Route: 042
  3. MAGROLIMAB [Concomitant]
     Active Substance: MAGROLIMAB
     Indication: Acute myeloid leukaemia
     Dosage: 27/AUG/2021; C2D1: 30 MG/M2; ON DAYS 1, 8, 15, 22
     Route: 042

REACTIONS (1)
  - Acute kidney injury [Recovered/Resolved]

NARRATIVE: CASE EVENT DATE: 20210901
